FAERS Safety Report 23865284 (Version 1)
Quarter: 2024Q2

REPORT INFORMATION
  Report Type: Spontaneous
  Country: AU (occurrence: AU)
  Receive Date: 20240517
  Receipt Date: 20240517
  Transmission Date: 20240715
  Serious: Yes (Other)
  Sender: FDA-Public Use
  Company Number: AU-JNJFOC-20240528921

PATIENT
  Age: 65 Year
  Sex: Female

DRUGS (1)
  1. RISPERDAL [Suspect]
     Active Substance: RISPERIDONE
     Indication: Schizophrenia
     Route: 048
     Dates: start: 20190430, end: 20200901

REACTIONS (11)
  - Haematochezia [Recovered/Resolved]
  - Akathisia [Recovering/Resolving]
  - Depersonalisation/derealisation disorder [Recovering/Resolving]
  - Abdominal pain [Recovering/Resolving]
  - Weight decreased [Recovering/Resolving]
  - Chorea [Recovering/Resolving]
  - Restless legs syndrome [Recovering/Resolving]
  - Cognitive disorder [Recovering/Resolving]
  - Intestinal barrier dysfunction [Recovering/Resolving]
  - Gastrooesophageal reflux disease [Recovering/Resolving]
  - Brain fog [Recovering/Resolving]

NARRATIVE: CASE EVENT DATE: 20190601
